FAERS Safety Report 5695010-0 (Version None)
Quarter: 2008Q2

REPORT INFORMATION
  Report Type: 
  Country: None (occurrence: None)
  Receive Date: 20080404
  Receipt Date: 20080326
  Transmission Date: 20081010
  Serious: Yes (Congenital Anomaly)
  Sender: FDA-Public Use
  Company Number: FR-ABBOTT-08P-056-0444165-00

PATIENT
  Sex: Female

DRUGS (2)
  1. DEPAKENE [Suspect]
     Indication: DRUG EXPOSURE DURING PREGNANCY
     Route: 064
  2. TOPIRAMATE [Suspect]
     Indication: DRUG EXPOSURE DURING PREGNANCY
     Route: 064

REACTIONS (17)
  - ATRIAL SEPTAL DEFECT [None]
  - BREAST MALFORMATION [None]
  - CONGENITAL ANOMALY [None]
  - CONGENITAL EYELID MALFORMATION [None]
  - CONGENITAL HAND MALFORMATION [None]
  - CONGENITAL NAIL DISORDER [None]
  - CONGENITAL ORAL MALFORMATION [None]
  - DRUG EXPOSURE DURING PREGNANCY [None]
  - DYSMORPHISM [None]
  - FOETAL GROWTH RETARDATION [None]
  - HIRSUTISM [None]
  - LARYNGEAL DYSPNOEA [None]
  - LARYNGOMALACIA [None]
  - LIVEDO RETICULARIS [None]
  - NUCLEAR MAGNETIC RESONANCE IMAGING BRAIN ABNORMAL [None]
  - PULMONARY HYPERTENSION [None]
  - VENTRICULAR SEPTAL DEFECT [None]
